FAERS Safety Report 21757778 (Version 1)
Quarter: 2022Q4

REPORT INFORMATION
  Report Type: Spontaneous
  Country: US (occurrence: None)
  Receive Date: 20221221
  Receipt Date: 20221221
  Transmission Date: 20230113
  Serious: Yes (Other)
  Sender: FDA-Public Use
  Company Number: US-ROCHE-3044252

PATIENT
  Sex: Male
  Weight: 94.3 kg

DRUGS (2)
  1. ACTIVASE [Suspect]
     Active Substance: ALTEPLASE
     Indication: Ischaemic stroke
     Dosage: DATE OF SERVICE 25/JAN/2022
     Route: 040
  2. ACTIVASE [Suspect]
     Active Substance: ALTEPLASE
     Dosage: DATE OF SERVICE: 01/25/2022
     Route: 042

REACTIONS (3)
  - Angioedema [Unknown]
  - Throat tightness [Unknown]
  - Swollen tongue [Unknown]
